FAERS Safety Report 5923795-4 (Version None)
Quarter: 2008Q4

REPORT INFORMATION
  Report Type: 
  Country: None (occurrence: None)
  Receive Date: 20081020
  Receipt Date: 20081009
  Transmission Date: 20090506
  Serious: No
  Sender: FDA-Public Use
  Company Number: US-JNJFOC-20081002851

PATIENT
  Sex: Female
  Weight: 86.18 kg

DRUGS (5)
  1. RISPERDAL [Suspect]
     Indication: BIPOLAR DISORDER
     Route: 048
  2. RISPERDAL [Suspect]
     Indication: PSYCHOTIC DISORDER
     Route: 048
  3. INVEGA [Suspect]
     Indication: BIPOLAR DISORDER
     Route: 065
  4. INVEGA [Suspect]
     Indication: PSYCHOTIC DISORDER
     Route: 065
  5. MULTIPLE DRUGS [Concomitant]
     Route: 065

REACTIONS (4)
  - AMENORRHOEA [None]
  - BLOOD PROLACTIN ABNORMAL [None]
  - OEDEMA MOUTH [None]
  - RASH [None]
